FAERS Safety Report 15348974 (Version 1)
Quarter: 2018Q3

REPORT INFORMATION
  Report Type: Spontaneous
  Country: FR (occurrence: FR)
  Receive Date: 20180904
  Receipt Date: 20180904
  Transmission Date: 20181010
  Serious: Yes (Other)
  Sender: FDA-Public Use
  Company Number: FR-HQ SPECIALTY-FR-2018INT000168

PATIENT

DRUGS (3)
  1. ETOPOSIDE. [Suspect]
     Active Substance: ETOPOSIDE
     Indication: TESTICULAR SEMINOMA (PURE) STAGE II
     Dosage: UNK (4 CYCLES)
     Route: 065
     Dates: start: 201404
  2. BLEOMYCIN [Suspect]
     Active Substance: BLEOMYCIN SULFATE
     Indication: TESTICULAR SEMINOMA (PURE) STAGE II
     Dosage: UNK (4 CYCLES)
     Route: 065
     Dates: start: 201404
  3. CISPLATIN. [Suspect]
     Active Substance: CISPLATIN
     Indication: TESTICULAR SEMINOMA (PURE) STAGE II
     Dosage: UNK (4 CYCLES)
     Route: 065
     Dates: start: 201404

REACTIONS (2)
  - Acute myeloid leukaemia [Unknown]
  - Chloroma [Unknown]
